FAERS Safety Report 10606950 (Version 2)
Quarter: 2014Q4

REPORT INFORMATION
  Report Type: Spontaneous
  Country: US (occurrence: US)
  Receive Date: 20141125
  Receipt Date: 20141125
  Transmission Date: 20150529
  Serious: No
  Sender: FDA-Public Use
  Company Number: US-TEVA-435357USA

PATIENT
  Sex: Male
  Weight: 75.36 kg

DRUGS (1)
  1. OXYBUTYNIN [Suspect]
     Active Substance: OXYBUTYNIN
     Dates: start: 2012

REACTIONS (2)
  - Drug hypersensitivity [Unknown]
  - Malaise [Unknown]
